FAERS Safety Report 14937925 (Version 1)
Quarter: 2018Q2

REPORT INFORMATION
  Report Type: Spontaneous
  Country: US (occurrence: US)
  Receive Date: 20180507
  Receipt Date: 20180507
  Transmission Date: 20180711
  Serious: Yes (Other)
  Sender: FDA-Public Use
  Company Number: None

PATIENT
  Age: 72 Year
  Sex: Female
  Weight: 75.3 kg

DRUGS (7)
  1. DULOXETINE 30 MG BY MOUTH ONCE DAILY [Concomitant]
     Dates: start: 20180301, end: 20180507
  2. HOME OXYGEN THERAPY [Concomitant]
     Dates: start: 20180201, end: 20180507
  3. PREDNISONE 60 MG BY MOUTH DAILY [Concomitant]
     Dates: start: 20180410, end: 20180429
  4. LEVOTHYROXINE 88 MCG BY MOUTH ONCE DAILY [Concomitant]
     Dates: start: 20180329, end: 20180507
  5. DAPSONE. [Suspect]
     Active Substance: DAPSONE
     Indication: INTERSTITIAL LUNG DISEASE
     Route: 048
     Dates: start: 20180410, end: 20180417
  6. PANTOPRAZOLE 40 MG BY MOUTH TWICE DAILY [Concomitant]
     Dates: start: 20180410, end: 20180507
  7. CYANOCOBALAMINE INJECTION 1,000 MCG IM INJECTION EVERY 30 DAYS [Concomitant]
     Dates: start: 20180201, end: 20180507

REACTIONS (4)
  - Dyspnoea [None]
  - Asthenia [None]
  - Methaemoglobinaemia [None]
  - Rectal haemorrhage [None]

NARRATIVE: CASE EVENT DATE: 20180427
